FAERS Safety Report 4879948-X (Version None)
Quarter: 2006Q1

REPORT INFORMATION
  Report Type: 
  Country: None (occurrence: None)
  Receive Date: 20060111
  Receipt Date: 20051228
  Transmission Date: 20060701
  Serious: Yes (Other)
  Sender: FDA-Public Use
  Company Number: 2004-DE-03984GD

PATIENT
  Age: 35 Year
  Sex: Male

DRUGS (3)
  1. AZATHIOPRINE [Suspect]
     Indication: COLITIS ULCERATIVE
     Dosage: SEE IMAGE
     Dates: start: 20000101, end: 20000601
  2. AZATHIOPRINE [Suspect]
     Indication: COLITIS ULCERATIVE
     Dosage: SEE IMAGE
     Dates: start: 20000601, end: 20020301
  3. STEROIDS (CORTICOSTEROIDS) [Concomitant]

REACTIONS (4)
  - CHOLESTASIS [None]
  - HEPATOTOXICITY [None]
  - NODULAR REGENERATIVE HYPERPLASIA [None]
  - RED BLOOD CELL SEDIMENTATION RATE INCREASED [None]
